FAERS Safety Report 9315431 (Version 1)
Quarter: 2013Q2

REPORT INFORMATION
  Report Type: Spontaneous
  Country: US (occurrence: US)
  Receive Date: 20130529
  Receipt Date: 20130529
  Transmission Date: 20140414
  Serious: Yes (Other)
  Sender: FDA-Public Use
  Company Number: US-BAYER-2013-066253

PATIENT
  Age: 75 Year
  Sex: Female
  Weight: 99.77 kg

DRUGS (5)
  1. BAYER GENUINE ASPIRIN ORIGINAL STRENGTH [Suspect]
     Indication: ANALGESIC THERAPY
     Dosage: UNK, PRN
     Route: 048
  2. ALEVE LIQUID GELS [Suspect]
     Indication: MYALGIA
     Dosage: 1 DF, QD
     Route: 048
     Dates: end: 20130524
  3. SYNTHROID [Concomitant]
  4. ACCUPRIL [Concomitant]
  5. DYAZIDE [Concomitant]

REACTIONS (4)
  - Gastric haemorrhage [None]
  - Haematemesis [None]
  - Incorrect dose administered [None]
  - Incorrect drug administration duration [None]
